FAERS Safety Report 4952135-2 (Version None)
Quarter: 2006Q1

REPORT INFORMATION
  Report Type: 
  Country: None (occurrence: None)
  Receive Date: 20060320
  Receipt Date: 20060309
  Transmission Date: 20060701
  Serious: Yes (Other)
  Sender: FDA-Public Use
  Company Number: 2006020659

PATIENT
  Age: 12 Year
  Sex: Male
  Weight: 39 kg

DRUGS (10)
  1. GENOTROPIN [Suspect]
     Indication: HYPOPITUITARISM
     Dosage: 1.6 MG (DAILY), SUBCUTANEOUS
     Route: 058
     Dates: start: 20030101, end: 20030101
  2. GENOTROPIN [Suspect]
     Indication: HYPOPITUITARISM
     Dosage: 1.6 MG (DAILY), SUBCUTANEOUS
     Route: 058
     Dates: start: 20051103, end: 20060125
  3. GENOTROPIN [Suspect]
  4. KETOSTERIL (AMINO ACIDS NOS) [Concomitant]
  5. ROCALTROL [Concomitant]
  6. PYRIDOXINE HCL [Concomitant]
  7. CELASKON (ASCORBIC ACID) [Concomitant]
  8. ACIDUM FOLICUM (FOLIC ACID) [Concomitant]
  9. CALCIUM CARBONATE (CALCIUM CARBONATE) [Concomitant]
  10. SHOHL'S SOLUTION (CITRIC ACID, SODIUM CITRATE) [Concomitant]

REACTIONS (4)
  - CHONDROMATOSIS [None]
  - CONDITION AGGRAVATED [None]
  - EXOSTOSIS [None]
  - METABOLIC ACIDOSIS [None]
